FAERS Safety Report 6139837-X (Version None)
Quarter: 2009Q2

REPORT INFORMATION
  Report Type: 
  Country: None (occurrence: None)
  Receive Date: 20090401
  Receipt Date: 20081125
  Transmission Date: 20091009
  Serious: No
  Sender: FDA-Public Use
  Company Number: US-BAYER-200833936NA

PATIENT
  Age: 38 Year
  Sex: Male

DRUGS (1)
  1. ULTRAVIST 370 [Suspect]
     Indication: COMPUTERISED TOMOGRAM THORAX
     Dosage: TOTAL DAILY DOSE: 125 ML  UNIT DOSE: 125 ML
     Route: 042
     Dates: start: 20080911, end: 20080911

REACTIONS (3)
  - EYE PRURITUS [None]
  - OCULAR HYPERAEMIA [None]
  - SNEEZING [None]
